FAERS Safety Report 19895304 (Version 1)
Quarter: 2021Q3

REPORT INFORMATION
  Report Type: Spontaneous
  Country: US (occurrence: US)
  Receive Date: 20210929
  Receipt Date: 20210929
  Transmission Date: 20211014
  Serious: Yes (Hospitalization)
  Sender: FDA-Public Use
  Company Number: None

PATIENT
  Age: 65 Year
  Sex: Female

DRUGS (22)
  1. MAGNESIUM [Concomitant]
     Active Substance: MAGNESIUM
  2. VITAMIN D3 [Concomitant]
     Active Substance: CHOLECALCIFEROL
  3. LIDOCAINE. [Concomitant]
     Active Substance: LIDOCAINE
  4. VITAMIN B12 [Concomitant]
     Active Substance: CYANOCOBALAMIN
  5. GLATIRAMER [Suspect]
     Active Substance: GLATIRAMER
     Indication: MULTIPLE SCLEROSIS
     Dosage: ?          OTHER FREQUENCY:3X PER WEEK;?
     Route: 058
     Dates: start: 20180302
  6. MONTELUKAST [Concomitant]
     Active Substance: MONTELUKAST SODIUM
  7. EMGALITY [Concomitant]
     Active Substance: GALCANEZUMAB-GNLM
  8. METHOCARBAMOL. [Concomitant]
     Active Substance: METHOCARBAMOL
  9. OXYBUTYNIN. [Concomitant]
     Active Substance: OXYBUTYNIN CHLORIDE
  10. RIZATRIPTAN. [Concomitant]
     Active Substance: RIZATRIPTAN
  11. TYLENOL [Concomitant]
     Active Substance: ACETAMINOPHEN
  12. CHLORZOXAZON [Concomitant]
     Active Substance: CHLORZOXAZONE
  13. MELOXICAM. [Concomitant]
     Active Substance: MELOXICAM
  14. BUPROPION. [Concomitant]
     Active Substance: BUPROPION
  15. PAROXETINE. [Concomitant]
     Active Substance: PAROXETINE
  16. TOPIRAMATE. [Concomitant]
     Active Substance: TOPIRAMATE
  17. ATORVASTATIN [Concomitant]
     Active Substance: ATORVASTATIN
  18. GABAPENTIN. [Concomitant]
     Active Substance: GABAPENTIN
  19. METFORMIN [Concomitant]
     Active Substance: METFORMIN HYDROCHLORIDE
  20. TRAZODONE [Concomitant]
     Active Substance: TRAZODONE HYDROCHLORIDE
  21. LANSOPRAZOLE. [Concomitant]
     Active Substance: LANSOPRAZOLE
  22. OXYCODONE [Concomitant]
     Active Substance: OXYCODONE

REACTIONS (1)
  - Neck surgery [None]
